FAERS Safety Report 13397402 (Version 1)
Quarter: 2017Q2

REPORT INFORMATION
  Report Type: Spontaneous
  Country: US (occurrence: US)
  Receive Date: 20170403
  Receipt Date: 20170403
  Transmission Date: 20170830
  Serious: Yes (Other)
  Sender: FDA-Public Use
  Company Number: US-BAYER-2017-057273

PATIENT
  Age: 28 Year
  Sex: Male

DRUGS (1)
  1. ALKA-SELTZER ORIGINAL [Suspect]
     Active Substance: ANHYDROUS CITRIC ACID\ASPIRIN\SODIUM BICARBONATE
     Indication: GASTROINTESTINAL DISORDER
     Dosage: 2 DF, Q4HR
     Route: 048
     Dates: start: 20170323, end: 20170324

REACTIONS (5)
  - Vomiting [Not Recovered/Not Resolved]
  - Regurgitation [Unknown]
  - Product use issue [Unknown]
  - Haematemesis [Not Recovered/Not Resolved]
  - Haemoptysis [Unknown]

NARRATIVE: CASE EVENT DATE: 20170323
